FAERS Safety Report 8558955 (Version 2)
Quarter: 2015Q2

REPORT INFORMATION
  Report Type: Spontaneous
  Country: US (occurrence: US)
  Receive Date: 20120511
  Receipt Date: 20150603
  Transmission Date: 20150821
  Serious: Yes (Other)
  Sender: FDA-Public Use
  Company Number: US-BAYER-2012-045676

PATIENT
  Age: 28 Year
  Sex: Female

DRUGS (4)
  1. GIANVI [Suspect]
     Active Substance: DROSPIRENONE\ETHINYL ESTRADIOL
     Dosage: UNK
     Dates: start: 2003, end: 200608
  2. YASMIN [Suspect]
     Active Substance: DROSPIRENONE\ETHINYL ESTRADIOL
     Dosage: UNK
     Dates: start: 2003, end: 200608
  3. OCELLA [Suspect]
     Active Substance: DROSPIRENONE\ETHINYL ESTRADIOL
     Dosage: UNK
     Dates: start: 2003, end: 200608
  4. YAZ [Suspect]
     Active Substance: DROSPIRENONE\ETHINYL ESTRADIOL
     Dosage: UNK
     Dates: start: 2003, end: 200608

REACTIONS (7)
  - Anhedonia [None]
  - Fear [None]
  - Injury [None]
  - Pain [None]
  - Anxiety [None]
  - Cerebrovascular accident [None]
  - Emotional distress [None]

NARRATIVE: CASE EVENT DATE: 200608
